FAERS Safety Report 15387592 (Version 8)
Quarter: 2019Q3

REPORT INFORMATION
  Report Type: Spontaneous
  Country: US (occurrence: US)
  Receive Date: 20180914
  Receipt Date: 20190911
  Transmission Date: 20191004
  Serious: Yes (Death, Hospitalization, Other)
  Sender: FDA-Public Use
  Company Number: US-ACTELION-A-NJ2018-178711

PATIENT
  Age: 80 Year
  Sex: Male
  Weight: 102.04 kg

DRUGS (18)
  1. UPTRAVI [Suspect]
     Active Substance: SELEXIPAG
     Dosage: 200 MCG, BID
     Route: 048
     Dates: start: 20170207
  2. UPTRAVI [Suspect]
     Active Substance: SELEXIPAG
     Dosage: 600 MCG, BID
     Route: 048
     Dates: start: 20190420, end: 20190710
  3. ADEMPAS [Concomitant]
     Active Substance: RIOCIGUAT
  4. INSULIN [Concomitant]
     Active Substance: INSULIN NOS
     Dosage: UNK
     Dates: start: 20120417
  5. OXYGEN. [Concomitant]
     Active Substance: OXYGEN
     Dosage: UNK
     Dates: start: 2015
  6. MVI [Concomitant]
     Active Substance: VITAMINS
  7. BUMETANIDE. [Concomitant]
     Active Substance: BUMETANIDE
     Dosage: UNK
     Dates: start: 20151015
  8. FERRIC CITRATE [Concomitant]
     Active Substance: TETRAFERRIC TRICITRATE DECAHYDRATE
     Dosage: UNK
     Dates: start: 20170228
  9. SIMVASTATIN. [Concomitant]
     Active Substance: SIMVASTATIN
     Dosage: UNK
     Dates: start: 20131104
  10. VITAMIN E [Concomitant]
     Active Substance: .ALPHA.-TOCOPHEROL
     Dosage: UNK
     Dates: start: 20190413
  11. ALBUTEROL. [Concomitant]
     Active Substance: ALBUTEROL
     Dosage: UNK
     Dates: start: 20131104
  12. PARICALCITOL. [Concomitant]
     Active Substance: PARICALCITOL
     Dosage: UNK
     Dates: start: 20140905
  13. UPTRAVI [Suspect]
     Active Substance: SELEXIPAG
     Indication: PULMONARY ARTERIAL HYPERTENSION
     Dosage: 600 MCG, BID
     Route: 048
     Dates: start: 20170403, end: 20190419
  14. CHOLECALCIFEROL [Concomitant]
     Active Substance: CHOLECALCIFEROL
     Dosage: UNK
     Dates: start: 20181204
  15. ASPIRIN. [Concomitant]
     Active Substance: ASPIRIN
     Dosage: UNK
     Dates: start: 20111208
  16. CALCIUM CARBONATE. [Concomitant]
     Active Substance: CALCIUM CARBONATE
     Dosage: UNK
     Dates: start: 20190413
  17. FERROUS SULFATE. [Concomitant]
     Active Substance: FERROUS SULFATE
     Dosage: UNK
     Dates: start: 20170829
  18. SEVELAMER [Concomitant]
     Active Substance: SEVELAMER
     Dosage: UNK
     Dates: start: 20180612

REACTIONS (23)
  - Pulmonary congestion [Unknown]
  - Tricuspid valve incompetence [Unknown]
  - Troponin increased [Unknown]
  - Blood urea increased [Not Recovered/Not Resolved]
  - Haemorrhage [Unknown]
  - Acute respiratory failure [Fatal]
  - Dyspnoea [Unknown]
  - Pleural effusion [Not Recovered/Not Resolved]
  - Pulmonary hypertension [Unknown]
  - Atrial fibrillation [Not Recovered/Not Resolved]
  - Bundle branch block right [Unknown]
  - Pulmonary arterial hypertension [Fatal]
  - Oedema [Unknown]
  - Dilatation atrial [Unknown]
  - Blood creatinine increased [Not Recovered/Not Resolved]
  - Left ventricular failure [Fatal]
  - Cardiac failure [Not Recovered/Not Resolved]
  - Dialysis [Unknown]
  - Hypotension [Unknown]
  - Cardiomegaly [Unknown]
  - Brain natriuretic peptide increased [Not Recovered/Not Resolved]
  - Chest pain [Not Recovered/Not Resolved]
  - Bradycardia [Unknown]

NARRATIVE: CASE EVENT DATE: 20180626
